FAERS Safety Report 8013730-X (Version None)
Quarter: 2011Q4

REPORT INFORMATION
  Report Type: 
  Country: None (occurrence: None)
  Receive Date: 20111229
  Receipt Date: 20111219
  Transmission Date: 20120403
  Serious: Yes (Hospitalization)
  Sender: FDA-Public Use
  Company Number: US-ELI_LILLY_AND_COMPANY-US201112006873

PATIENT
  Sex: Female

DRUGS (22)
  1. CITALOPRAM [Concomitant]
  2. SPIRIVA [Concomitant]
  3. ASPIRIN [Concomitant]
  4. VITAMIN D [Concomitant]
  5. ARICEPT [Concomitant]
  6. SIMVASTATIN [Concomitant]
  7. IPRATROPIUM BROMIDE [Concomitant]
  8. FUROSEMIDE [Concomitant]
  9. VENTOLIN                                /SCH/ [Concomitant]
  10. ALIGN [Concomitant]
  11. ALPHAGAN [Concomitant]
  12. O2 [Concomitant]
  13. ALBUTEROL [Concomitant]
  14. FORTEO [Suspect]
     Indication: OSTEOPOROSIS
     Dosage: 20 UG, QD
     Dates: start: 20111118, end: 20111216
  15. METOPROLOL SUCCINATE [Concomitant]
  16. CENTRUM SILVER [Concomitant]
  17. MAGNESIUM [Concomitant]
  18. ZYRTEC [Concomitant]
  19. SYMBICORT [Concomitant]
  20. NASONEX [Concomitant]
  21. NAMENDA [Concomitant]
  22. OMEPRAZOLE [Concomitant]

REACTIONS (2)
  - BRONCHITIS [None]
  - NASAL CONGESTION [None]
